FAERS Safety Report 15665647 (Version 1)
Quarter: 2018Q4

REPORT INFORMATION
  Report Type: Spontaneous
  Country: TR (occurrence: TR)
  Receive Date: 20181128
  Receipt Date: 20181128
  Transmission Date: 20190205
  Serious: Yes (Hospitalization)
  Sender: FDA-Public Use
  Company Number: TR-OTSUKA-BMS-2016-021980

PATIENT
  Age: 34 Year
  Sex: Female

DRUGS (4)
  1. FLUOXETINE [Suspect]
     Active Substance: FLUOXETINE HYDROCHLORIDE
     Indication: OBSESSIVE-COMPULSIVE DISORDER
     Dosage: 80 MG, QD
     Route: 065
  2. OPC-14597 [Suspect]
     Active Substance: CILOSTAZOL
     Indication: MAJOR DEPRESSION
     Dosage: 10 MG, QD
     Route: 048
  3. OPC-14597 [Suspect]
     Active Substance: CILOSTAZOL
     Indication: OBSESSIVE-COMPULSIVE DISORDER
  4. FLUOXETINE [Suspect]
     Active Substance: FLUOXETINE HYDROCHLORIDE
     Indication: MAJOR DEPRESSION

REACTIONS (2)
  - Myopia [Recovered/Resolved]
  - Pseudomyopia [Unknown]
